FAERS Safety Report 11592095 (Version 3)
Quarter: 2015Q4

REPORT INFORMATION
  Report Type: Spontaneous
  Country: US (occurrence: US)
  Receive Date: 20151005
  Receipt Date: 20151201
  Transmission Date: 20160304
  Serious: No
  Sender: FDA-Public Use
  Company Number: US-PFIZER INC-2015319133

PATIENT
  Age: 71 Year
  Sex: Female
  Weight: 53.97 kg

DRUGS (2)
  1. GABAPENTIN. [Suspect]
     Active Substance: GABAPENTIN
     Indication: NEUROPATHY PERIPHERAL
     Dosage: UNK
     Dates: start: 2015, end: 2015
  2. GABAPENTIN. [Suspect]
     Active Substance: GABAPENTIN
     Dosage: UNK
     Dates: start: 2015, end: 2015

REACTIONS (3)
  - Dry mouth [Recovered/Resolved]
  - Drug ineffective for unapproved indication [Unknown]
  - Vision blurred [Not Recovered/Not Resolved]
